FAERS Safety Report 5963108-5 (Version None)
Quarter: 2008Q4

REPORT INFORMATION
  Report Type: 
  Country: None (occurrence: None)
  Receive Date: 20081124
  Receipt Date: 20081112
  Transmission Date: 20090506
  Serious: Yes (Other)
  Sender: FDA-Public Use
  Company Number: JP-NOVOPROD-281524

PATIENT
  Age: 74 Year
  Sex: Male

DRUGS (1)
  1. INNOLET 30R CHU [Suspect]
     Indication: TYPE 2 DIABETES MELLITUS
     Dosage: 15 IU, QD
     Route: 058

REACTIONS (2)
  - ANTI-INSULIN ANTIBODY INCREASED [None]
  - BLOOD GLUCOSE INCREASED [None]
